FAERS Safety Report 17058112 (Version 1)
Quarter: 2019Q4

REPORT INFORMATION
  Report Type: Spontaneous
  Country: US (occurrence: US)
  Receive Date: 20191121
  Receipt Date: 20191121
  Transmission Date: 20200122
  Serious: No
  Sender: FDA-Public Use
  Company Number: NVSC2019US039244

PATIENT
  Age: 8 Year
  Sex: Male

DRUGS (6)
  1. DORZOLAMIDE,TIMOLOL [Suspect]
     Active Substance: DORZOLAMIDE\TIMOLOL
     Indication: PRODUCT USED FOR UNKNOWN INDICATION
     Dosage: DORZOLAMIDE 2%/TIMOLOL 0.5% BID OU
     Route: 065
  2. TRAVOPROST. [Suspect]
     Active Substance: TRAVOPROST
     Indication: PRODUCT USED FOR UNKNOWN INDICATION
     Dosage: UNK, QHS
     Route: 065
  3. CROMOLYN [Concomitant]
     Active Substance: CROMOLYN
     Indication: PRODUCT USED FOR UNKNOWN INDICATION
     Dosage: UNK UNK, BID
     Route: 065
  4. CYCLOSPORINE. [Concomitant]
     Active Substance: CYCLOSPORINE
     Indication: PRODUCT USED FOR UNKNOWN INDICATION
     Dosage: UNK UNK, BID
     Route: 065
  5. LOTEPREDNOL [Suspect]
     Active Substance: LOTEPREDNOL
     Dosage: UNK, TID OU
     Route: 065
  6. LOTEPREDNOL [Suspect]
     Active Substance: LOTEPREDNOL
     Indication: PRODUCT USED FOR UNKNOWN INDICATION
     Dosage: UNK UNK, QID OU
     Route: 065

REACTIONS (1)
  - Drug ineffective [Unknown]
